FAERS Safety Report 8460116-X (Version None)
Quarter: 2012Q2

REPORT INFORMATION
  Report Type: 
  Country: None (occurrence: None)
  Receive Date: 20120622
  Receipt Date: 20120611
  Transmission Date: 20120825
  Serious: Yes (Hospitalization)
  Sender: FDA-Public Use
  Company Number: JP-ELI_LILLY_AND_COMPANY-JP201205001808

PATIENT
  Age: 83 Year
  Sex: Male
  Weight: 50 kg

DRUGS (5)
  1. DABIGATRAN ETEXILATE MESILATE [Concomitant]
     Indication: ATRIAL FIBRILLATION
     Dosage: 110 MG, BID
     Route: 048
     Dates: start: 20110706, end: 20110914
  2. HUMALOG [Suspect]
     Indication: TYPE 1 DIABETES MELLITUS
     Dosage: 6 IU, TID
     Route: 058
     Dates: start: 20110704, end: 20111003
  3. LANTUS [Concomitant]
     Indication: TYPE 1 DIABETES MELLITUS
     Dosage: 7 IU, EACH MORNING
     Route: 058
  4. RABEPRAZOLE SODIUM [Concomitant]
     Indication: GASTRITIS
     Dosage: 10 MG, QD
     Route: 048
  5. GASMOTIN [Concomitant]
     Indication: GASTRITIS
     Dosage: 5 MG, QD
     Route: 048

REACTIONS (1)
  - HEPATIC FUNCTION ABNORMAL [None]
